FAERS Safety Report 19860150 (Version 1)
Quarter: 2021Q3

REPORT INFORMATION
  Report Type: Spontaneous
  Country: US (occurrence: US)
  Receive Date: 20210920
  Receipt Date: 20210920
  Transmission Date: 20211014
  Serious: Yes (Other)
  Sender: FDA-Public Use
  Company Number: US-BRISTOL-MYERS SQUIBB COMPANY-BMS-2021-093097

PATIENT
  Age: 58 Year
  Sex: Female

DRUGS (1)
  1. ORENCIA [Suspect]
     Active Substance: ABATACEPT
     Indication: RHEUMATOID ARTHRITIS
     Dosage: 125MG/ML CLICKJET (4) QWK
     Route: 065
     Dates: start: 20210629

REACTIONS (2)
  - Arthropathy [Recovering/Resolving]
  - Post procedural pruritus [Unknown]

NARRATIVE: CASE EVENT DATE: 20210909
